FAERS Safety Report 24932393 (Version 1)
Quarter: 2025Q1

REPORT INFORMATION
  Report Type: Spontaneous
  Country: US (occurrence: US)
  Receive Date: 20250205
  Receipt Date: 20250205
  Transmission Date: 20250408
  Serious: No
  Sender: EXELIXIS
  Company Number: US-EXELIXIS-CABO-24080609

PATIENT
  Sex: Female
  Weight: 80.272 kg

DRUGS (14)
  1. CABOMETYX [Suspect]
     Active Substance: CABOZANTINIB S-MALATE
     Indication: Renal cancer
  2. LENVIMA [Suspect]
     Active Substance: LENVATINIB
     Indication: Renal cancer
     Dosage: 18 MG, QD
     Route: 048
     Dates: start: 202407
  3. EVEROLIMUS [Concomitant]
     Active Substance: EVEROLIMUS
  4. RAMIPRIL [Concomitant]
     Active Substance: RAMIPRIL
  5. VITAMIN B COMPLEX [Concomitant]
     Active Substance: CYANOCOBALAMIN\DEXPANTHENOL\NIACINAMIDE\PYRIDOXINE HYDROCHLORIDE\RIBOFLAVIN 5^-PHOSPHATE SODIUM\THIA
  6. VITAMIN C [Concomitant]
     Active Substance: ASCORBIC ACID
  7. VITAMINS [Concomitant]
     Active Substance: VITAMINS
  8. ROSUVASTATIN CALCIUM [Concomitant]
     Active Substance: ROSUVASTATIN CALCIUM
  9. ASPIRIN [Concomitant]
     Active Substance: ASPIRIN
  10. VITAMIN D3 [Concomitant]
     Active Substance: CHOLECALCIFEROL
  11. ZYRTEC [Concomitant]
     Active Substance: CETIRIZINE HYDROCHLORIDE
  12. GABAPENTIN [Concomitant]
     Active Substance: GABAPENTIN
  13. TRULICITY [Concomitant]
     Active Substance: DULAGLUTIDE
  14. METFORMIN HYDROCHLORIDE [Concomitant]
     Active Substance: METFORMIN HYDROCHLORIDE

REACTIONS (6)
  - Urine abnormality [Not Recovered/Not Resolved]
  - Dry skin [Not Recovered/Not Resolved]
  - Myalgia [Not Recovered/Not Resolved]
  - Abdominal distension [Not Recovered/Not Resolved]
  - Back pain [Not Recovered/Not Resolved]
  - Dry mouth [Not Recovered/Not Resolved]

NARRATIVE: CASE EVENT DATE: 20240812
